FAERS Safety Report 18290722 (Version 2)
Quarter: 2021Q1

REPORT INFORMATION
  Report Type: Spontaneous
  Country: GR (occurrence: GR)
  Receive Date: 20200922
  Receipt Date: 20210201
  Transmission Date: 20210419
  Serious: Yes (Other)
  Sender: FDA-Public Use
  Company Number: GR-SA-2020SA241562

PATIENT
  Age: 41 Year
  Sex: Male

DRUGS (6)
  1. REZOLSTA [Concomitant]
     Active Substance: COBICISTAT\DARUNAVIR ETHANOLATE
     Route: 065
  2. ELOCTA [Suspect]
     Active Substance: EFMOROCTOCOG ALFA
     Dosage: UNK
     Route: 042
  3. ELOCTA [Suspect]
     Active Substance: EFMOROCTOCOG ALFA
     Indication: FACTOR VIII DEFICIENCY
     Dosage: 3000 IU, BIW
     Route: 042
     Dates: start: 2018
  4. ELOCTA [Suspect]
     Active Substance: EFMOROCTOCOG ALFA
     Dosage: UNK
     Route: 042
  5. EPIVIR [Concomitant]
     Active Substance: LAMIVUDINE
     Route: 065
  6. ELOCTA [Suspect]
     Active Substance: EFMOROCTOCOG ALFA
     Indication: FACTOR VIII DEFICIENCY
     Dosage: 3000 IU, BIW
     Route: 042
     Dates: start: 2018

REACTIONS (3)
  - Coronary artery disease [Not Recovered/Not Resolved]
  - Angina pectoris [Not Recovered/Not Resolved]
  - Myocardial infarction [Unknown]

NARRATIVE: CASE EVENT DATE: 2020
